FAERS Safety Report 6528857-9 (Version None)
Quarter: 2010Q1

REPORT INFORMATION
  Report Type: 
  Country: None (occurrence: None)
  Receive Date: 20100106
  Receipt Date: 20091223
  Transmission Date: 20100710
  Serious: Yes (Other)
  Sender: FDA-Public Use
  Company Number: GB-BAUSCH-2009BL006764

PATIENT
  Age: 8 Year
  Sex: Male

DRUGS (1)
  1. PREDNISOLONE [Suspect]
     Indication: DUCHENNE MUSCULAR DYSTROPHY

REACTIONS (3)
  - ABNORMAL BEHAVIOUR [None]
  - RHABDOMYOLYSIS [None]
  - URINARY TRACT INFECTION [None]
